FAERS Safety Report 9540449 (Version 1)
Quarter: 2013Q3

REPORT INFORMATION
  Report Type: Spontaneous
  Country: IT (occurrence: IT)
  Receive Date: 20130920
  Receipt Date: 20130920
  Transmission Date: 20140515
  Serious: Yes (Hospitalization)
  Sender: FDA-Public Use
  Company Number: IT-GLAXOSMITHKLINE-B0924074A

PATIENT
  Age: 70 Year
  Sex: Female

DRUGS (2)
  1. TYVERB [Suspect]
     Indication: BREAST CANCER
     Dosage: 1250MGD PER DAY
     Route: 065
     Dates: start: 20130501, end: 20130712
  2. CAPECITABINE [Suspect]
     Indication: BREAST CANCER
     Dosage: 3000MGD PER DAY
     Route: 065
     Dates: start: 20130501, end: 20130712

REACTIONS (1)
  - Gastroenteritis [Recovered/Resolved]
